FAERS Safety Report 6084844-9 (Version None)
Quarter: 2009Q1

REPORT INFORMATION
  Report Type: 
  Country: None (occurrence: None)
  Receive Date: 20090218
  Receipt Date: 20090209
  Transmission Date: 20090719
  Serious: Yes (Death, Hospitalization, Other)
  Sender: FDA-Public Use
  Company Number: 2009SP003128

PATIENT
  Age: 61 Year
  Sex: Female

DRUGS (14)
  1. TEMODAR [Suspect]
     Indication: GLIOBLASTOMA MULTIFORME
     Dosage: 125 MG; QD; PO
     Route: 048
     Dates: start: 20081106, end: 20081118
  2. DEXAMETHASONE [Suspect]
     Indication: BRAIN OEDEMA
     Dosage: 4 MG;, 14 MG; QD;, 12 MG; QD;
     Dates: end: 20081118
  3. DEXAMETHASONE [Suspect]
     Indication: BRAIN OEDEMA
     Dosage: 4 MG;, 14 MG; QD;, 12 MG; QD;
     Dates: start: 20081009
  4. CT-322 [Suspect]
     Indication: GLIOBLASTOMA MULTIFORME
     Dosage: 28 MG; QW; IV
     Route: 042
     Dates: start: 20081118, end: 20081118
  5. KEPPRA [Concomitant]
  6. XANAX [Concomitant]
  7. ACETAMINOPHEN [Concomitant]
  8. ZOFRAN [Concomitant]
  9. SULFAMETHOXAZOLE AND TRIMETHOPRIM [Concomitant]
  10. TRIMETHOPRIM [Concomitant]
  11. TUMS [Concomitant]
  12. KYTRIL [Concomitant]
  13. NICOTINE [Concomitant]
  14. OXYCODONE HCL [Concomitant]

REACTIONS (20)
  - ARTERIOSCLEROSIS [None]
  - BRONCHOPULMONARY ASPERGILLOSIS [None]
  - CARDIAC ARREST [None]
  - DEHYDRATION [None]
  - DIZZINESS [None]
  - GENERAL PHYSICAL HEALTH DETERIORATION [None]
  - HEPATIC STEATOSIS [None]
  - HYPERTENSION [None]
  - HYPOTENSION [None]
  - HYPOXIA [None]
  - METABOLIC ACIDOSIS [None]
  - MITRAL VALVE DISEASE [None]
  - NEPHROSCLEROSIS [None]
  - NODAL RHYTHM [None]
  - OPPORTUNISTIC INFECTION [None]
  - PLATELET COUNT DECREASED [None]
  - RENAL FAILURE ACUTE [None]
  - RESPIRATORY DISTRESS [None]
  - SEPTIC SHOCK [None]
  - SINUS CONGESTION [None]
